FAERS Safety Report 4557152-2 (Version None)
Quarter: 2005Q1

REPORT INFORMATION
  Report Type: 
  Country: None (occurrence: None)
  Receive Date: 20050118
  Receipt Date: 20050106
  Transmission Date: 20050727
  Serious: Yes (Other)
  Sender: FDA-Public Use
  Company Number: 2005-01-0467

PATIENT
  Age: 51 Year
  Sex: Male
  Weight: 30.391 kg

DRUGS (2)
  1. REBETOL [Suspect]
     Indication: HEPATITIS C
     Dosage: 600 MG ORAL
     Route: 048
     Dates: start: 20031108, end: 20040508
  2. INTRON A [Suspect]
     Indication: HEPATITIS C
     Dosage: 3-10 MIU INTRAMUSCULAR
     Route: 030
     Dates: start: 20031108, end: 20041106

REACTIONS (2)
  - IMPAIRED HEALING [None]
  - INJECTION SITE ULCER [None]
